FAERS Safety Report 13403607 (Version 1)
Quarter: 2017Q2

REPORT INFORMATION
  Report Type: Spontaneous
  Country: GR (occurrence: GR)
  Receive Date: 20170405
  Receipt Date: 20170405
  Transmission Date: 20170830
  Serious: Yes (Hospitalization)
  Sender: FDA-Public Use
  Company Number: PHHY2017GR045001

PATIENT
  Sex: Female

DRUGS (5)
  1. COSENTYX [Suspect]
     Active Substance: SECUKINUMAB
     Indication: PSORIATIC ARTHROPATHY
     Route: 065
     Dates: start: 201604
  2. MIRAPEXIN [Concomitant]
     Active Substance: PRAMIPEXOLE
     Indication: PRODUCT USED FOR UNKNOWN INDICATION
     Route: 065
  3. OLARTAN PLUS [Concomitant]
     Indication: PRODUCT USED FOR UNKNOWN INDICATION
     Route: 065
  4. XOZAL [Concomitant]
     Active Substance: LEVOCETIRIZINE
     Indication: SEASONAL ALLERGY
     Route: 065
  5. DAFLON [Concomitant]
     Active Substance: DIOSMIN\HESPERIDIN
     Indication: PRODUCT USED FOR UNKNOWN INDICATION
     Route: 065

REACTIONS (3)
  - Infection [Recovered/Resolved]
  - Body temperature increased [Not Recovered/Not Resolved]
  - Herpes simplex encephalitis [Not Recovered/Not Resolved]

NARRATIVE: CASE EVENT DATE: 20170214
